FAERS Safety Report 7412696-0 (Version None)
Quarter: 2011Q2

REPORT INFORMATION
  Report Type: 
  Country: None (occurrence: None)
  Receive Date: 20110413
  Receipt Date: 20101101
  Transmission Date: 20111010
  Serious: Yes (Hospitalization, Other)
  Sender: FDA-Public Use
  Company Number: US-BAYER-201033761NA

PATIENT
  Age: 43 Year
  Sex: Female
  Weight: 86.168 kg

DRUGS (5)
  1. DOXYCYCLINE [Concomitant]
     Indication: INFECTION
     Dosage: UNK
     Dates: start: 20070613, end: 20070701
  2. ALTACE [Concomitant]
     Dosage: UNK
     Dates: start: 20070713
  3. YAZ [Suspect]
     Indication: CONTRACEPTION
     Dosage: UNK UNK, UNK
     Route: 048
     Dates: start: 20070507, end: 20070709
  4. COREG [Concomitant]
     Dosage: UNK
     Dates: start: 20070713
  5. DIGOXIN [Concomitant]
     Dosage: UNK
     Dates: start: 20070713

REACTIONS (3)
  - PULMONARY EMBOLISM [None]
  - CHEST PAIN [None]
  - MYOCARDIAL INFARCTION [None]
